FAERS Safety Report 7544053-0 (Version None)
Quarter: 2011Q2

REPORT INFORMATION
  Report Type: 
  Country: None (occurrence: None)
  Receive Date: 20110613
  Receipt Date: 20050815
  Transmission Date: 20111010
  Serious: Yes (Other)
  Sender: FDA-Public Use
  Company Number: PHHO2005CA11482

PATIENT
  Sex: Male

DRUGS (8)
  1. SALBUTAMOL SULFATE [Concomitant]
  2. NITROGLYCERIN [Concomitant]
  3. CARDIZEM [Concomitant]
  4. SYNTHROID [Concomitant]
  5. ISORDIL [Concomitant]
  6. NOVIRASIN [Concomitant]
  7. SANDOSTATIN LAR [Suspect]
     Indication: HEPATIC NEOPLASM MALIGNANT
     Dosage: 20 MG, EVERY 4 WEEKS
     Dates: start: 20041103
  8. PRAVACHOL [Concomitant]

REACTIONS (3)
  - DYSPNOEA [None]
  - BALANCE DISORDER [None]
  - OCULAR ICTERUS [None]
